FAERS Safety Report 5565513-8 (Version None)
Quarter: 2007Q4

REPORT INFORMATION
  Report Type: 
  Country: None (occurrence: None)
  Receive Date: 20071218
  Receipt Date: 20071207
  Transmission Date: 20080405
  Serious: Yes (Other)
  Sender: FDA-Public Use
  Company Number: US-ASTRAZENECA-2007UW26314

PATIENT
  Age: 63 Year
  Sex: Female
  Weight: 81.6 kg

DRUGS (4)
  1. ARIMIDEX [Suspect]
     Indication: BREAST CANCER
     Route: 048
     Dates: start: 20050401
  2. METFORMIN HCL [Concomitant]
  3. AVANDIA [Concomitant]
     Dates: end: 20070501
  4. JANUVIA [Concomitant]

REACTIONS (4)
  - ARTHRALGIA [None]
  - DRY MOUTH [None]
  - HYPOAESTHESIA [None]
  - TOOTH LOSS [None]
